FAERS Safety Report 14390758 (Version 1)
Quarter: 2018Q1

REPORT INFORMATION
  Report Type: Spontaneous
  Country: FR (occurrence: FR)
  Receive Date: 20180116
  Receipt Date: 20180116
  Transmission Date: 20180509
  Serious: Yes (Hospitalization)
  Sender: FDA-Public Use
  Company Number: FR-BAUSCH-BL-2018-001374

PATIENT
  Age: 61 Year
  Sex: Male

DRUGS (3)
  1. IRINOTECAN MYLAN [Suspect]
     Active Substance: IRINOTECAN
     Indication: RECTAL ADENOCARCINOMA
     Dosage: CONCENTRATE FOR SOLUTION FOR INFUSION?EVERY CYCLE
     Route: 042
     Dates: start: 20170828, end: 20171106
  2. ZALTRAP [Suspect]
     Active Substance: ZIV-AFLIBERCEPT
     Indication: RECTAL ADENOCARCINOMA
     Dosage: EVERY CYCLE
     Route: 042
     Dates: start: 20171020, end: 20171106
  3. FLUOROURACILE ACCORD [Suspect]
     Active Substance: FLUOROURACIL
     Indication: RECTAL ADENOCARCINOMA
     Dosage: EVERY CYCLE
     Route: 042
     Dates: start: 20170828, end: 20171106

REACTIONS (1)
  - Status epilepticus [Recovered/Resolved with Sequelae]

NARRATIVE: CASE EVENT DATE: 20171109
